FAERS Safety Report 8249570-6 (Version None)
Quarter: 2012Q2

REPORT INFORMATION
  Report Type: 
  Country: None (occurrence: None)
  Receive Date: 20120402
  Receipt Date: 20120327
  Transmission Date: 20120825
  Serious: Yes (Death)
  Sender: FDA-Public Use
  Company Number: US-ASTELLAS-2012US002976

PATIENT
  Sex: Female

DRUGS (6)
  1. OMEPRAZOLE [Concomitant]
     Indication: GASTROOESOPHAGEAL REFLUX DISEASE
     Dosage: 20 MG, UID/QD
     Route: 048
     Dates: start: 20120203
  2. TARCEVA [Suspect]
     Indication: PRODUCT USED FOR UNKNOWN INDICATION
     Dosage: UNK
     Route: 048
  3. METOCLOPRAMIDE [Concomitant]
     Indication: DYSPEPSIA
     Dosage: 10 MG, UID/QD
     Route: 048
     Dates: start: 20120203
  4. SERTRALINE HYDROCHLORIDE [Concomitant]
     Indication: DEPRESSION
     Dosage: 1 DF, UID/QD
     Route: 048
     Dates: start: 20111114
  5. URSODIOL [Concomitant]
     Indication: CHOLELITHIASIS
     Dosage: 500 MG, UNKNOWN/D
     Route: 048
     Dates: start: 20120302
  6. FUROSEMIDE [Concomitant]
     Indication: OEDEMA
     Dosage: 20 MG, UID/QD
     Route: 048
     Dates: start: 20111226

REACTIONS (1)
  - DEATH [None]
